FAERS Safety Report 8177449-7 (Version None)
Quarter: 2012Q1

REPORT INFORMATION
  Report Type: 
  Country: None (occurrence: None)
  Receive Date: 20120301
  Receipt Date: 20120227
  Transmission Date: 20120608
  Serious: Yes (Other)
  Sender: FDA-Public Use
  Company Number: US-PFIZER INC-2011085085

PATIENT
  Sex: Female
  Weight: 108.84 kg

DRUGS (6)
  1. LYRICA [Suspect]
     Indication: NEURALGIA
  2. LYRICA [Suspect]
     Indication: NERVE INJURY
  3. HYDROCHLOROTHIAZIDE [Concomitant]
     Indication: INNER EAR DISORDER
     Dosage: 25 MG, 1X/DAY
  4. LYRICA [Suspect]
     Indication: HERPES ZOSTER
     Dosage: 75 MG, 1X/DAY
     Route: 048
     Dates: start: 20101120
  5. ALLEGRA [Concomitant]
     Indication: HYPERSENSITIVITY
     Dosage: 60 MG, 1X/DAY
  6. LISINOPRIL [Concomitant]
     Indication: BLOOD PRESSURE ABNORMAL
     Dosage: 10 MG, 1X/DAY

REACTIONS (9)
  - AREFLEXIA [None]
  - JOINT SWELLING [None]
  - HYPOAESTHESIA [None]
  - LOWER LIMB FRACTURE [None]
  - GAIT DISTURBANCE [None]
  - HERPES ZOSTER [None]
  - FALL [None]
  - JOINT INJURY [None]
  - NEURALGIA [None]
